FAERS Safety Report 10152941 (Version 4)
Quarter: 2014Q2

REPORT INFORMATION
  Report Type: Report from Study
  Country: IL (occurrence: IL)
  Receive Date: 20140505
  Receipt Date: 20140530
  Transmission Date: 20141212
  Serious: Yes (Disabling)
  Sender: FDA-Public Use
  Company Number: IL-GLAXOSMITHKLINE-Z0022532B

PATIENT
  Age: 59 Year
  Sex: Female

DRUGS (5)
  1. ELTROMBOPAG [Suspect]
     Indication: THROMBOCYTOPENIA
     Dosage: 100MG PER DAY
     Route: 048
     Dates: start: 20140404, end: 20140430
  2. ELTROXIN [Concomitant]
     Dosage: 150MG PER DAY
  3. HUMALOG [Concomitant]
     Dosage: 8U THREE TIMES PER DAY
  4. LEVEMIR [Concomitant]
     Dosage: 15U PER DAY
  5. HORMONAL INTRAUTERINE CONTRACEPTIVE DEVICE (UNSPECIFIED) [Concomitant]
     Route: 015
     Dates: start: 2010

REACTIONS (1)
  - Retinal vein occlusion [Recovering/Resolving]
